FAERS Safety Report 4697813-8 (Version None)
Quarter: 2005Q2

REPORT INFORMATION
  Report Type: 
  Country: None (occurrence: None)
  Receive Date: 20050623
  Receipt Date: 20050608
  Transmission Date: 20051028
  Serious: Yes (Hospitalization)
  Sender: FDA-Public Use
  Company Number: PT-JNJFOC-20050301385

PATIENT
  Sex: Female

DRUGS (5)
  1. REMICADE [Suspect]
     Dosage: FOUR INFUSIONS
     Route: 042
  2. REMICADE [Suspect]
     Route: 042
  3. REMICADE [Suspect]
     Route: 042
  4. REMICADE [Suspect]
     Indication: CROHN'S DISEASE
     Route: 042
  5. AZATHIOPRINE [Concomitant]
     Indication: CROHN'S DISEASE
     Route: 049

REACTIONS (2)
  - DRUG INEFFECTIVE [None]
  - TYPE IV HYPERSENSITIVITY REACTION [None]
